FAERS Safety Report 26000479 (Version 1)
Quarter: 2025Q4

REPORT INFORMATION
  Report Type: Spontaneous
  Country: US (occurrence: US)
  Receive Date: 20251105
  Receipt Date: 20251105
  Transmission Date: 20260117
  Serious: No
  Sender: ANI
  Company Number: US-ANIPHARMA-2025-US-040733

PATIENT
  Age: 30 Year
  Sex: Male
  Weight: 99.79 kg

DRUGS (11)
  1. CYCLOSPORINE [Concomitant]
     Active Substance: CYCLOSPORINE
  2. ATORVASTATIN [Concomitant]
     Active Substance: ATORVASTATIN
  3. LEVOTHYROXINE [Concomitant]
     Active Substance: LEVOTHYROXINE
  4. SODIUM BICARBONATE [Concomitant]
     Active Substance: SODIUM BICARBONATE
  5. VITAMIN D [Concomitant]
     Active Substance: VITAMIN D NOS
  6. BUMEX [Concomitant]
     Active Substance: BUMETANIDE
  7. NIFEDIPINE [Suspect]
     Active Substance: NIFEDIPINE
     Indication: Product used for unknown indication
     Dates: start: 20250821
  8. MAGNESIUM [Concomitant]
     Active Substance: MAGNESIUM
  9. Potassium binder [Concomitant]
  10. CALCIUM ACETATE [Concomitant]
     Active Substance: CALCIUM ACETATE
  11. CORTICOTROPIN [Suspect]
     Active Substance: CORTICOTROPIN
     Indication: Nephrotic syndrome
     Dosage: 80 UNITS TWICE WEEKLY
     Route: 058
     Dates: start: 20250821

REACTIONS (10)
  - Nocturia [Recovered/Resolved]
  - Contraindicated product administered [Not Recovered/Not Resolved]
  - Urine output decreased [Recovered/Resolved]
  - Peripheral swelling [Recovered/Resolved]
  - Condition aggravated [Recovered/Resolved]
  - Fluid retention [Recovered/Resolved]
  - Blood pressure increased [Recovered/Resolved]
  - Heart rate increased [Recovered/Resolved]
  - Abnormal weight gain [Recovered/Resolved]
  - Hypopnoea [Recovered/Resolved]

NARRATIVE: CASE EVENT DATE: 20250801
